FAERS Safety Report 5135893-6 (Version None)
Quarter: 2006Q4

REPORT INFORMATION
  Report Type: 
  Country: None (occurrence: None)
  Receive Date: 20061026
  Receipt Date: 20061023
  Transmission Date: 20070319
  Serious: Yes (Other)
  Sender: FDA-Public Use
  Company Number: ZA-MERCK-0610ZAF00018

PATIENT
  Age: 63 Year
  Sex: Male

DRUGS (5)
  1. ZETIA [Suspect]
     Route: 048
     Dates: start: 20050101, end: 20060101
  2. FLUVASTATIN SODIUM [Concomitant]
     Route: 048
  3. METFORMIN HYDROCHLORIDE [Concomitant]
     Indication: DIABETES MELLITUS
     Route: 048
  4. ASPIRIN [Concomitant]
     Route: 048
  5. TELMISARTAN [Concomitant]
     Route: 048

REACTIONS (1)
  - NON-HODGKIN'S LYMPHOMA [None]
